FAERS Safety Report 15404162 (Version 1)
Quarter: 2018Q3

REPORT INFORMATION
  Report Type: Report from Study
  Country: TW (occurrence: TW)
  Receive Date: 20180919
  Receipt Date: 20180919
  Transmission Date: 20181010
  Serious: Yes (Life-Threatening)
  Sender: FDA-Public Use
  Company Number: TW-PFIZER INC-2018374608

PATIENT
  Sex: Female

DRUGS (2)
  1. METHOTREXATE SODIUM. [Suspect]
     Active Substance: METHOTREXATE SODIUM
     Indication: ECTOPIC PREGNANCY
     Dosage: 1.00 MG/KG (ON DAYS 1, 3, 5,AND 7) INJECTION
     Route: 030
  2. 5?METHYLTETRAHYDROFOLATE [Concomitant]
     Indication: ECTOPIC PREGNANCY
     Dosage: 0.1 MG/KG, CYCLIC (ON DAYS 2, 4, 6, AND 8)

REACTIONS (1)
  - Vaginal haemorrhage [Unknown]
